FAERS Safety Report 18235749 (Version 3)
Quarter: 2020Q4

REPORT INFORMATION
  Report Type: Spontaneous
  Country: GB (occurrence: GB)
  Receive Date: 20200905
  Receipt Date: 20201214
  Transmission Date: 20210113
  Serious: Yes (Other)
  Sender: FDA-Public Use
  Company Number: GB-AMGEN-GBRSP2020141560

PATIENT
  Sex: Male

DRUGS (1)
  1. BLINCYTO [Suspect]
     Active Substance: BLINATUMOMAB
     Indication: MINIMAL RESIDUAL DISEASE
     Dosage: UNK
     Route: 065

REACTIONS (3)
  - Acute lymphocytic leukaemia recurrent [Unknown]
  - Pneumonia [Unknown]
  - Back pain [Unknown]

NARRATIVE: CASE EVENT DATE: 20200914
